FAERS Safety Report 8331495-9 (Version None)
Quarter: 2012Q2

REPORT INFORMATION
  Report Type: 
  Country: None (occurrence: None)
  Receive Date: 20120502
  Receipt Date: 20120418
  Transmission Date: 20120825
  Serious: No
  Sender: FDA-Public Use
  Company Number: US-AMGEN-USASP2011011724

PATIENT
  Age: 89 Year
  Sex: Female

DRUGS (1)
  1. ENBREL [Suspect]
     Indication: PSORIATIC ARTHROPATHY
     Dates: start: 20040901

REACTIONS (4)
  - DENTAL CARIES [None]
  - COUGH [None]
  - PSORIATIC ARTHROPATHY [None]
  - SNEEZING [None]
